FAERS Safety Report 8535843-6 (Version None)
Quarter: 2012Q3

REPORT INFORMATION
  Report Type: 
  Country: None (occurrence: None)
  Receive Date: 20120725
  Receipt Date: 20120719
  Transmission Date: 20120928
  Serious: Yes (Other)
  Sender: FDA-Public Use
  Company Number: GB-JNJFOC-20120710683

PATIENT
  Sex: Female

DRUGS (2)
  1. SIMPONI [Suspect]
     Indication: PRODUCT USED FOR UNKNOWN INDICATION
     Route: 058
     Dates: start: 20120620
  2. SIMPONI [Suspect]
     Route: 058

REACTIONS (3)
  - TONSILLITIS [None]
  - VEIN DISCOLOURATION [None]
  - OEDEMA PERIPHERAL [None]
